FAERS Safety Report 6977047-4 (Version None)
Quarter: 2010Q3

REPORT INFORMATION
  Report Type: 
  Country: None (occurrence: None)
  Receive Date: 20100910
  Receipt Date: 20100902
  Transmission Date: 20110219
  Serious: Yes (Hospitalization, Other)
  Sender: FDA-Public Use
  Company Number: US-ROCHE-725811

PATIENT
  Sex: Female

DRUGS (1)
  1. BEVACIZUMAB [Suspect]
     Route: 065
     Dates: start: 20060501, end: 20100818

REACTIONS (4)
  - BACK PAIN [None]
  - BARRETT'S OESOPHAGUS [None]
  - BLOOD PRESSURE INCREASED [None]
  - PANCREATITIS [None]
